FAERS Safety Report 23358542 (Version 1)
Quarter: 2023Q4

REPORT INFORMATION
  Report Type: Spontaneous
  Country: US (occurrence: None)
  Receive Date: 20231231
  Receipt Date: 20231231
  Transmission Date: 20240109
  Serious: No
  Sender: FDA-Public Use
  Company Number: None

PATIENT
  Sex: Female

DRUGS (3)
  1. TREMFYA [Suspect]
     Active Substance: GUSELKUMAB
     Indication: Psoriasis
     Dosage: 100MG  EVERY 8 WEEKS SUBCUTANEOUS?
     Route: 058
     Dates: start: 202207
  2. DALFAMIPRIDINE ER [Concomitant]
  3. MAYZENT [Concomitant]
     Active Substance: SIPONIMOD

REACTIONS (1)
  - Drug ineffective [None]
